FAERS Safety Report 7333066 (Version 2)
Quarter: 2013Q4

REPORT INFORMATION
  Report Type: Report from Study
  Country: US (occurrence: US)
  Receive Date: 20100326
  Receipt Date: 20131007
  Transmission Date: 20140711
  Serious: Yes (Other)
  Sender: FDA-Public Use
  Company Number: US-BRISTOL-MYERS SQUIBB COMPANY-15022593

PATIENT
  Age: 11 Year
  Sex: Male
  Weight: 31.4 kg

DRUGS (4)
  1. ATAZANAVIR [Suspect]
     Indication: HIV INFECTION
     Dosage: LAST INF-11MAR2009
     Dates: start: 20041123
  2. STAVUDINE [Suspect]
     Indication: HIV INFECTION
     Dosage: LAST INF-11MAR2009
     Dates: start: 20041123, end: 20090311
  3. LAMIVUDINE [Suspect]
     Indication: HIV INFECTION
     Dosage: LAST INF-11MAR2009
     Dates: start: 20041123
  4. EPILIM [Concomitant]
     Dosage: EPILIM CR-5YRS9MONTHS
     Dates: start: 20060215

REACTIONS (1)
  - Facial wasting [Unknown]
